FAERS Safety Report 10273557 (Version 1)
Quarter: 2014Q2

REPORT INFORMATION
  Report Type: Spontaneous
  Country: FR (occurrence: None)
  Receive Date: 20140630
  Receipt Date: 20140630
  Transmission Date: 20141212
  Serious: Yes (Hospitalization)
  Sender: FDA-Public Use
  Company Number: FK201402478

PATIENT
  Age: 78 Year
  Sex: Male

DRUGS (14)
  1. PIPERACILLIN/TAZOBACTAM KABI [Suspect]
     Indication: PRODUCT USED FOR UNKNOWN INDICATION
     Route: 042
     Dates: start: 20140409, end: 20140409
  2. VANCOMYCINE [Suspect]
     Indication: PRODUCT USED FOR UNKNOWN INDICATION
     Dates: start: 20140410, end: 20140411
  3. GENTAMICINE PANPHARMA [Suspect]
     Indication: PRODUCT USED FOR UNKNOWN INDICATION
     Dates: start: 20140410, end: 20140410
  4. ORBENINE [Suspect]
     Indication: PRODUCT USED FOR UNKNOWN INDICATION
     Dates: start: 20140411, end: 20140423
  5. AMIKACINE MYLAN [Suspect]
     Indication: PRODUCT USED FOR UNKNOWN INDICATION
     Dates: start: 20140409, end: 20140409
  6. ATENOLOL (ATENOLOL) [Concomitant]
  7. TELMISARTAN (TELMISARTAN) [Concomitant]
  8. TANGANIL (ETHANOLAMINE) [Concomitant]
  9. UROREC (SILODOSIN) [Concomitant]
  10. FORLAX (MACROGOL) [Concomitant]
  11. PARACETAMOL (PARACETAMOL) [Concomitant]
  12. OXYCONTIN (OXYCODONE HYDROCHLORIDE) [Concomitant]
  13. OXYNORM (OXYCODONE HYDROCHLORIDE) (OXYCODONE HYDROCHLORIDE) [Concomitant]
  14. RIVOTRIL (CLONAZEPAM) [Concomitant]

REACTIONS (8)
  - Renal failure acute [None]
  - Pneumonia aspiration [None]
  - Respiratory distress [None]
  - Generalised tonic-clonic seizure [None]
  - Encephalopathy [None]
  - White matter lesion [None]
  - Overdose [None]
  - Rash [None]
